FAERS Safety Report 14014812 (Version 1)
Quarter: 2017Q3

REPORT INFORMATION
  Report Type: Spontaneous
  Country: US (occurrence: None)
  Receive Date: 20170927
  Receipt Date: 20170927
  Transmission Date: 20171128
  Serious: Yes (Hospitalization)
  Sender: FDA-Public Use
  Company Number: None

PATIENT
  Age: 77 Year
  Sex: Female
  Weight: 75.9 kg

DRUGS (4)
  1. CYCLOSPHAMIDE [Suspect]
     Active Substance: CYCLOPHOSPHAMIDE
     Dates: end: 20110816
  2. DOXORUBICIN HYDROCHLORIDE. [Suspect]
     Active Substance: DOXORUBICIN HYDROCHLORIDE
     Dates: end: 20110816
  3. NEULASTA [Suspect]
     Active Substance: PEGFILGRASTIM
     Dates: end: 20110817
  4. TAXOL [Suspect]
     Active Substance: PACLITAXEL
     Dates: end: 20111115

REACTIONS (5)
  - Fatigue [None]
  - Dyspnoea [None]
  - Mediastinal mass [None]
  - Breast cancer metastatic [None]
  - Pericardial effusion [None]

NARRATIVE: CASE EVENT DATE: 20170627
